FAERS Safety Report 4821722-4 (Version None)
Quarter: 2005Q4

REPORT INFORMATION
  Report Type: 
  Country: None (occurrence: None)
  Receive Date: 20051103
  Receipt Date: 20051018
  Transmission Date: 20060501
  Serious: Yes (Other)
  Sender: FDA-Public Use
  Company Number: USA0510109678

PATIENT
  Age: 40 Year
  Sex: Female
  Weight: 54 kg

DRUGS (3)
  1. CYMBALTA [Suspect]
     Indication: DEPRESSION
     Dosage: 30 MG
     Dates: start: 20050922, end: 20050927
  2. MOTRIN [Concomitant]
  3. ESTRADIOL W/METHYLTESTOSTERONE [Concomitant]

REACTIONS (4)
  - COMPLEX PARTIAL SEIZURES [None]
  - HYPOKALAEMIA [None]
  - LOSS OF CONSCIOUSNESS [None]
  - OPIATES POSITIVE [None]
